FAERS Safety Report 7801950-6 (Version None)
Quarter: 2011Q4

REPORT INFORMATION
  Report Type: 
  Country: None (occurrence: None)
  Receive Date: 20111007
  Receipt Date: 20111007
  Transmission Date: 20120403
  Serious: Yes (Life-Threatening, Hospitalization)
  Sender: FDA-Public Use
  Company Number: None

PATIENT
  Age: 19 Year
  Sex: Male
  Weight: 83.914 kg

DRUGS (1)
  1. HALDOL [Suspect]

REACTIONS (1)
  - ACUTE PSYCHOSIS [None]
